FAERS Safety Report 10149531 (Version 2)
Quarter: 2014Q2

REPORT INFORMATION
  Report Type: Spontaneous
  Country: NL (occurrence: NL)
  Receive Date: 20140502
  Receipt Date: 20140507
  Transmission Date: 20141212
  Serious: Yes (Other)
  Sender: FDA-Public Use
  Company Number: NL-PFIZER INC-2014119819

PATIENT
  Age: 17 Year
  Sex: Female
  Weight: 65 kg

DRUGS (4)
  1. LOVETTE [Suspect]
     Indication: CONTRACEPTION
     Dosage: 1 DF, CYCLIC
     Dates: start: 20090515, end: 20140314
  2. QVAR [Concomitant]
     Indication: ASTHMA
     Dosage: 1 DF, 4X/DAY
     Dates: start: 19910601
  3. SALBUTAMOL [Concomitant]
     Indication: ASTHMA
     Dosage: 1 DF, 4X/DAY
     Dates: start: 19910601
  4. SERETIDE [Concomitant]
     Indication: ASTHMA
     Dosage: UNK
     Dates: start: 2001, end: 2012

REACTIONS (3)
  - Palpitations [Recovering/Resolving]
  - Heart rate increased [Recovering/Resolving]
  - Heart rate irregular [Recovering/Resolving]
